FAERS Safety Report 16641675 (Version 3)
Quarter: 2019Q3

REPORT INFORMATION
  Report Type: Spontaneous
  Country: US (occurrence: US)
  Receive Date: 20190729
  Receipt Date: 20190830
  Transmission Date: 20191004
  Serious: Yes (Other)
  Sender: FDA-Public Use
  Company Number: US-AMGEN-USASP2019116190

PATIENT
  Age: 68 Year
  Sex: Female
  Weight: 78.46 kg

DRUGS (18)
  1. LEVOCETIRIZINE [Concomitant]
     Active Substance: LEVOCETIRIZINE
     Dosage: 5 MILLIGRAM, QD
     Route: 048
  2. ACYCLOVIR. [Concomitant]
     Active Substance: ACYCLOVIR
     Dosage: 400 MILLIGRAM, QD, TABLET
     Route: 048
     Dates: start: 20141028
  3. ASPIRIN 81 [Concomitant]
     Active Substance: ASPIRIN
     Dosage: 81 MILLIGRAM, QD
     Route: 048
  4. ACETAMINOPHEN. [Concomitant]
     Active Substance: ACETAMINOPHEN
     Dosage: 325 MILLIGRAM, 1 TABLET EVERY 6 HOURS AS NECESSARY
     Route: 048
  5. IBUPROFEN. [Concomitant]
     Active Substance: IBUPROFEN
     Dosage: 400 MILLIGRAM, 1 TABLET EVERY 6 HOURS AS NECESSARY
     Route: 048
  6. NOVOLIN [Concomitant]
     Active Substance: INSULIN HUMAN
     Dosage: 70/30 U-100 INSULIN 100 UNIT/ML
     Route: 058
  7. AMLODIPINE [Concomitant]
     Active Substance: AMLODIPINE BESYLATE
     Dosage: 2.5 MILLIGRAM, QD
     Route: 048
  8. HYDROCHLOROTHIAZIDE. [Concomitant]
     Active Substance: HYDROCHLOROTHIAZIDE
     Dosage: 25 MILLIGRAM, QD
     Route: 048
  9. ZOLPIDEM [Concomitant]
     Active Substance: ZOLPIDEM TARTRATE
     Indication: INSOMNIA
     Dosage: ONE (1) TABLET AT BEDTIME, AS NECESSARY
  10. REPATHA [Suspect]
     Active Substance: EVOLOCUMAB
     Indication: HYPERCHOLESTEROLAEMIA
     Dosage: UNK, Q2WK
     Route: 065
     Dates: start: 20190621, end: 2019
  11. HYDROCODONE [Concomitant]
     Active Substance: HYDROCODONE
     Dosage: 5 MILLIGRAM, 1 TABLET EVERY 6 HOURS AS NECESSARY
     Route: 048
  12. CITALOPRAM [Concomitant]
     Active Substance: CITALOPRAM HYDROBROMIDE
     Dosage: 40 MILLIGRAM, QD
     Route: 048
  13. RANITIDINE. [Concomitant]
     Active Substance: RANITIDINE
     Dosage: 150 MILLIGRAM, QD
  14. WELCHOL [Concomitant]
     Active Substance: COLESEVELAM HYDROCHLORIDE
     Dosage: 625 MILLIGRAM, THREE TABLETS BID
     Route: 048
  15. VENTOLIN HFA [Concomitant]
     Active Substance: ALBUTEROL SULFATE
     Dosage: 90 MICROGRAM, INHALE 2 PUFFS EVERY 4-6 HOURS AS NECESSARY
  16. ACYCLOVIR. [Concomitant]
     Active Substance: ACYCLOVIR
     Dosage: 400 MILLIGRAM, TID
     Route: 048
  17. CANDESARTAN. [Concomitant]
     Active Substance: CANDESARTAN
     Dosage: 32 MILLIGRAM, QD
     Route: 048
     Dates: start: 20190716
  18. METFORMIN [Concomitant]
     Active Substance: METFORMIN HYDROCHLORIDE
     Dosage: 1000 MILLIGRAM, ONE-HALF TABLET BY MOUTH ONCE DAILY IN THE MORNING AND ONE TABTABLET ONCE DAILY IN T
     Route: 048

REACTIONS (3)
  - Headache [Recovered/Resolved]
  - Diarrhoea [Recovered/Resolved]
  - Cough [Recovered/Resolved]

NARRATIVE: CASE EVENT DATE: 20190622
